FAERS Safety Report 6755579-1 (Version None)
Quarter: 2010Q2

REPORT INFORMATION
  Report Type: 
  Country: None (occurrence: None)
  Receive Date: 20100604
  Receipt Date: 20100521
  Transmission Date: 20101027
  Serious: Yes (Hospitalization)
  Sender: FDA-Public Use
  Company Number: PHHY2010US33011

PATIENT
  Sex: Female

DRUGS (6)
  1. RECLAST [Suspect]
     Indication: OSTEOPOROSIS
     Dosage: 5 MG
     Route: 042
     Dates: start: 20100512
  2. VITAMIN D [Concomitant]
     Dosage: UNK
  3. IMITREX [Concomitant]
     Indication: MIGRAINE
     Dosage: UNK
  4. RELPAX [Concomitant]
     Indication: MIGRAINE
     Dosage: UNK
  5. SEROQUEL [Concomitant]
     Dosage: UNK
  6. XANAX [Concomitant]
     Dosage: UNK

REACTIONS (10)
  - ALANINE AMINOTRANSFERASE INCREASED [None]
  - ASPARTATE AMINOTRANSFERASE INCREASED [None]
  - BONE PAIN [None]
  - CHEST PAIN [None]
  - DYSPNOEA [None]
  - MYALGIA [None]
  - PAIN [None]
  - PAIN IN EXTREMITY [None]
  - PYREXIA [None]
  - TRANSAMINASES INCREASED [None]
